FAERS Safety Report 9336727 (Version 3)
Quarter: 2014Q1

REPORT INFORMATION
  Report Type: Report from Study
  Country: IT (occurrence: IT)
  Receive Date: 20130607
  Receipt Date: 20140310
  Transmission Date: 20141002
  Serious: Yes (Hospitalization)
  Sender: FDA-Public Use
  Company Number: IT-ROCHE-1230946

PATIENT
  Age: 72 Year
  Sex: Male
  Weight: 53 kg

DRUGS (9)
  1. VEMURAFENIB [Suspect]
     Indication: HAIRY CELL LEUKAEMIA
     Dosage: LAST DOSE PRIOR TO SAE: 21/MAY/2013
     Route: 048
     Dates: start: 20130521, end: 20130527
  2. EPINITRIL [Concomitant]
  3. NORVASC [Concomitant]
  4. LORAZEPAM [Concomitant]
  5. VIREAD [Concomitant]
  6. ANAFRANIL [Concomitant]
  7. AMARYL [Concomitant]
  8. CARDIOASPIRIN [Concomitant]
  9. VASORETIC [Concomitant]

REACTIONS (1)
  - Pancreatitis acute [Recovering/Resolving]
